FAERS Safety Report 16377873 (Version 2)
Quarter: 2019Q2

REPORT INFORMATION
  Report Type: Spontaneous
  Country: BE (occurrence: BE)
  Receive Date: 20190531
  Receipt Date: 20190624
  Transmission Date: 20190711
  Serious: Yes (Other)
  Sender: FDA-Public Use
  Company Number: PHHY2019BE120698

PATIENT
  Sex: Female
  Weight: 57.3 kg

DRUGS (6)
  1. BEVACIZUMAB. [Suspect]
     Active Substance: BEVACIZUMAB
     Dosage: 1 DF, Q3W
     Route: 042
  2. PACLITAXEL. [Suspect]
     Active Substance: PACLITAXEL
     Dosage: 1 DF, QW
     Route: 042
  3. BEVACIZUMAB. [Suspect]
     Active Substance: BEVACIZUMAB
     Indication: OVARIAN CANCER
     Dosage: 825 MG, Q3W (DATE OF LAST DOSE PRIOR TO SAE: 26/JUL/2016   )
     Route: 042
     Dates: start: 20160726
  4. CARBOPLATIN. [Suspect]
     Active Substance: CARBOPLATIN
     Dosage: 1 DF, QW
     Route: 042
  5. PACLITAXEL. [Suspect]
     Active Substance: PACLITAXEL
     Indication: OVARIAN CANCER
     Dosage: 60 MG/M2, QW
     Route: 042
     Dates: start: 20160719, end: 20160726
  6. CARBOPLATIN. [Suspect]
     Active Substance: CARBOPLATIN
     Indication: OVARIAN CANCER
     Dosage: 1 DF, QW (2.7 AUC ONCE A WEEKDATE OF LAST DOSE PRIOR TO SAE: 26/JUL/2016   )
     Route: 042
     Dates: start: 20160719, end: 20160726

REACTIONS (27)
  - Tachycardia [Not Recovered/Not Resolved]
  - Dry skin [Recovered/Resolved]
  - Balance disorder [Not Recovered/Not Resolved]
  - Decreased appetite [Not Recovered/Not Resolved]
  - Tinnitus [Recovered/Resolved]
  - Neutropenia [Recovered/Resolved]
  - Hyperkeratosis [Recovered/Resolved]
  - Visual impairment [Not Recovered/Not Resolved]
  - Orthostatic hypotension [Not Recovered/Not Resolved]
  - Dysphonia [Not Recovered/Not Resolved]
  - Asthenia [Not Recovered/Not Resolved]
  - Muscle spasms [Recovered/Resolved]
  - Gastrooesophageal reflux disease [Not Recovered/Not Resolved]
  - Myalgia [Not Recovered/Not Resolved]
  - Depressed mood [Recovered/Resolved]
  - Alopecia [Recovered/Resolved]
  - Dizziness [Not Recovered/Not Resolved]
  - Teeth brittle [Recovered/Resolved]
  - Contusion [Recovered/Resolved]
  - Constipation [Recovered/Resolved]
  - Musculoskeletal stiffness [Not Recovered/Not Resolved]
  - Epistaxis [Recovered/Resolved]
  - Anaemia [Not Recovered/Not Resolved]
  - Urge incontinence [Not Recovered/Not Resolved]
  - Rhinorrhoea [Recovered/Resolved]
  - Anaemia [Recovered/Resolved]
  - Epistaxis [Recovered/Resolved]

NARRATIVE: CASE EVENT DATE: 20160719
